FAERS Safety Report 20943123 (Version 1)
Quarter: 2022Q2

REPORT INFORMATION
  Report Type: Spontaneous
  Country: CA (occurrence: CA)
  Receive Date: 20220610
  Receipt Date: 20220610
  Transmission Date: 20220721
  Serious: Yes (Other)
  Sender: FDA-Public Use
  Company Number: CA-AMGEN-CANSP2022096356

PATIENT
  Age: 71 Year
  Sex: Male

DRUGS (2)
  1. BEVACIZUMAB [Suspect]
     Active Substance: BEVACIZUMAB
     Indication: Cystoid macular oedema
     Dosage: UNK
  2. NEPAFENAC [Concomitant]
     Active Substance: NEPAFENAC
     Indication: Cystoid macular oedema
     Route: 065

REACTIONS (2)
  - Plasma cell myeloma [Unknown]
  - Off label use [Unknown]
